FAERS Safety Report 4627584-2 (Version None)
Quarter: 2005Q2

REPORT INFORMATION
  Report Type: 
  Country: None (occurrence: None)
  Receive Date: 20050405
  Receipt Date: 20050321
  Transmission Date: 20051028
  Serious: Yes (Other)
  Sender: FDA-Public Use
  Company Number: A-US2004-08298

PATIENT
  Age: 46 Year
  Sex: Female

DRUGS (2)
  1. TRACLEER [Suspect]
     Indication: PULMONARY HYPERTENSION
     Dosage: ORAL
     Route: 048
  2. COUMADIN [Concomitant]

REACTIONS (12)
  - ABDOMINAL PAIN LOWER [None]
  - BLINDNESS [None]
  - CARDIAC DISORDER [None]
  - CYST [None]
  - DRUG INTERACTION [None]
  - GAIT DISTURBANCE [None]
  - HYPOXIA [None]
  - LIVER FUNCTION TEST ABNORMAL [None]
  - MULTI-ORGAN DISORDER [None]
  - NERVOUS SYSTEM DISORDER [None]
  - OEDEMA [None]
  - PANCREATIC DISORDER [None]
